FAERS Safety Report 17529022 (Version 1)
Quarter: 2020Q1

REPORT INFORMATION
  Report Type: Spontaneous
  Country: FR (occurrence: FR)
  Receive Date: 20200311
  Receipt Date: 20200311
  Transmission Date: 20200409
  Serious: Yes (Disabling)
  Sender: FDA-Public Use
  Company Number: FR-MYLANLABS-2020M1025708

PATIENT
  Age: 46 Year
  Sex: Male
  Weight: 157 kg

DRUGS (15)
  1. DIFFU K [Concomitant]
     Active Substance: POTASSIUM CHLORIDE
     Dosage: UNK
  2. VICTOZA [Concomitant]
     Active Substance: LIRAGLUTIDE
     Dosage: UNK
  3. SYMBICORT [Concomitant]
     Active Substance: BUDESONIDE\FORMOTEROL FUMARATE DIHYDRATE
     Dosage: UNK (400/12 MICROGRAMMES/DOSE)
  4. DOLIPRANE [Concomitant]
     Active Substance: ACETAMINOPHEN
     Dosage: UNK
  5. DULOXETINE MYLAN [Concomitant]
     Active Substance: DULOXETINE
     Dosage: UNK
  6. MONTELUKAST [Concomitant]
     Active Substance: MONTELUKAST SODIUM
     Dosage: UNK
  7. FLIXOTIDE [Concomitant]
     Active Substance: FLUTICASONE PROPIONATE
  8. ADENURIC [Concomitant]
     Active Substance: FEBUXOSTAT
     Dosage: UNK
  9. ESIDREX [Concomitant]
     Active Substance: HYDROCHLOROTHIAZIDE
     Dosage: UNK
  10. LANSOPRAZOLE MYLAN [Concomitant]
     Active Substance: LANSOPRAZOLE
     Dosage: UNK
  11. XATRAL                             /00975301/ [Concomitant]
     Active Substance: ALFUZOSIN
     Dosage: UNK
  12. LEVETIRACETAM MYLAN PHARMA 500 MG, COMPRIM? PELLICUL? [Suspect]
     Active Substance: LEVETIRACETAM
     Indication: MYOCLONIC EPILEPSY
     Dosage: 1000 MILLIGRAM, QD
     Route: 048
     Dates: start: 20191028
  13. SPASFON LYOC [Concomitant]
     Active Substance: PHLOROGLUCINOL
     Dosage: UNK
  14. KARDEGIC [Concomitant]
     Active Substance: ASPIRIN DL-LYSINE
     Dosage: UNK
  15. FUROSEMIDE ARROW [Concomitant]
     Active Substance: FUROSEMIDE
     Dosage: UNK

REACTIONS (1)
  - Behaviour disorder [Not Recovered/Not Resolved]

NARRATIVE: CASE EVENT DATE: 20191217
